FAERS Safety Report 25728798 (Version 1)
Quarter: 2025Q3

REPORT INFORMATION
  Report Type: Spontaneous
  Country: US (occurrence: US)
  Receive Date: 20250826
  Receipt Date: 20250826
  Transmission Date: 20251020
  Serious: Yes (Life-Threatening, Other)
  Sender: ELI LILLY AND COMPANY
  Company Number: US-ELI_LILLY_AND_COMPANY-US202508021464

PATIENT
  Age: 69 Year

DRUGS (1)
  1. MOUNJARO [Suspect]
     Active Substance: TIRZEPATIDE
     Indication: Product used for unknown indication
     Route: 065
     Dates: start: 202401, end: 202404

REACTIONS (5)
  - Dehydration [Unknown]
  - Intestinal obstruction [Unknown]
  - Ileus [Unknown]
  - Abdominal pain [Unknown]
  - Constipation [Unknown]
